FAERS Safety Report 5047179-9 (Version None)
Quarter: 2006Q3

REPORT INFORMATION
  Report Type: 
  Country: None (occurrence: None)
  Receive Date: 20060703
  Receipt Date: 20060615
  Transmission Date: 20061208
  Serious: Yes (Hospitalization)
  Sender: FDA-Public Use
  Company Number: DSA_81615_2006

PATIENT
  Age: 30 Year
  Sex: Female
  Weight: 72.5755 kg

DRUGS (12)
  1. XYREM [Suspect]
     Indication: SLEEP DISORDER
     Dosage: 4 G TWICE NIGHTLY PO
     Route: 048
     Dates: start: 20050101, end: 20050201
  2. ALLEGRA [Suspect]
     Dosage: DF
  3. COUGH MEDICINE (NOT SPECIFIED) [Suspect]
     Dosage: DF
  4. XYREM [Suspect]
     Indication: SLEEP DISORDER
     Dosage: 3 G TWICE NIGHTLY PO
     Route: 048
     Dates: start: 20050601, end: 20050101
  5. XANAX [Suspect]
     Indication: PSYCHOTIC DISORDER
     Dosage: 0.25 MG TID PO
     Route: 048
     Dates: start: 20050701
  6. ESTROGEN CREAM [Concomitant]
  7. ASPIRIN [Concomitant]
  8. AMBIEN [Concomitant]
  9. ROBAXIN           /00047901/ [Concomitant]
  10. PAXIL [Concomitant]
  11. ZYPREXA [Concomitant]
  12. RELPAX [Concomitant]

REACTIONS (30)
  - AFFECTIVE DISORDER [None]
  - ANXIETY [None]
  - BLOOD ALKALINE PHOSPHATASE INCREASED [None]
  - BLOOD CALCIUM DECREASED [None]
  - BRADYPHRENIA [None]
  - CONDITION AGGRAVATED [None]
  - CONFUSIONAL STATE [None]
  - DEPRESSION [None]
  - DRUG INTERACTION [None]
  - DYSPHORIA [None]
  - FEELINGS OF WORTHLESSNESS [None]
  - FLAT AFFECT [None]
  - HALLUCINATION [None]
  - HEART RATE INCREASED [None]
  - HOMICIDAL IDEATION [None]
  - ILLUSION [None]
  - MORBID THOUGHTS [None]
  - MULTIPLE DRUG OVERDOSE [None]
  - NERVOUSNESS [None]
  - OBSESSIVE THOUGHTS [None]
  - PANIC ATTACK [None]
  - PARANOIA [None]
  - PSYCHOTIC DISORDER [None]
  - SLEEP DISORDER [None]
  - SOMATIC DELUSION [None]
  - STRESS [None]
  - SUICIDE ATTEMPT [None]
  - SUSPICIOUSNESS [None]
  - TACHYCARDIA [None]
  - WHITE BLOOD CELL COUNT INCREASED [None]
